FAERS Safety Report 9355362 (Version 1)
Quarter: 2013Q2

REPORT INFORMATION
  Report Type: Spontaneous
  Country: US (occurrence: None)
  Receive Date: 20130618
  Receipt Date: 20130618
  Transmission Date: 20140414
  Serious: Yes (Disabling)
  Sender: FDA-Public Use
  Company Number: None

PATIENT
  Age: 72 Year
  Sex: Female
  Weight: 80.7 kg

DRUGS (1)
  1. RIVAROXABAN [Suspect]
     Indication: ATRIAL FIBRILLATION
     Route: 048
     Dates: start: 20121222, end: 20121230

REACTIONS (9)
  - Retroperitoneal haemorrhage [None]
  - Abdominal wall haematoma [None]
  - Hypotension [None]
  - Renal impairment [None]
  - Presyncope [None]
  - Abdominal pain [None]
  - Haemoglobin decreased [None]
  - Haemorrhage [None]
  - General physical health deterioration [None]
